FAERS Safety Report 14671365 (Version 5)
Quarter: 2018Q2

REPORT INFORMATION
  Report Type: Spontaneous
  Country: US (occurrence: US)
  Receive Date: 20180323
  Receipt Date: 20180510
  Transmission Date: 20180711
  Serious: Yes (Other)
  Sender: FDA-Public Use
  Company Number: US-009507513-1803USA008437

PATIENT
  Age: 25 Year
  Sex: Female
  Weight: 62.59 kg

DRUGS (3)
  1. NEXPLANON [Suspect]
     Active Substance: ETONOGESTREL
     Indication: CONTRACEPTION
     Dosage: ONE IMPLANT, EVERY 3 YEARS
     Route: 058
     Dates: start: 20171107, end: 20180317
  2. LEXAPRO [Concomitant]
     Active Substance: ESCITALOPRAM OXALATE
     Indication: ANXIETY
     Dosage: 5 MG, QD
     Route: 048
  3. LEXAPRO [Concomitant]
     Active Substance: ESCITALOPRAM OXALATE
     Indication: DEPRESSION

REACTIONS (12)
  - Skin atrophy [Unknown]
  - Implant site erythema [Recovered/Resolved]
  - Device dislocation [Recovered/Resolved]
  - Device deployment issue [Recovered/Resolved]
  - Impaired healing [Unknown]
  - Implant site discharge [Recovered/Resolved]
  - Implant site pruritus [Recovered/Resolved]
  - Implant site reaction [Recovering/Resolving]
  - Implant site rash [Recovered/Resolved]
  - Implant site irritation [Unknown]
  - Implant site swelling [Recovered/Resolved]
  - Device expulsion [Recovered/Resolved]

NARRATIVE: CASE EVENT DATE: 201711
